FAERS Safety Report 8789547 (Version 1)
Quarter: 2012Q4

REPORT INFORMATION
  Report Type: Spontaneous
  Country: US (occurrence: None)
  Receive Date: 20120906
  Receipt Date: 20120906
  Transmission Date: 20130627
  Serious: Yes (Hospitalization, Disabling, Other)
  Sender: FDA-Public Use
  Company Number: ACO_30096_2012

PATIENT
  Sex: Male

DRUGS (2)
  1. AMPYRA [Suspect]
     Indication: DRUG USE FOR UNKNOWN INDICATION
     Dates: start: 20110713
  2. COPAXONE (GLATIRAMER ACETATE) [Concomitant]

REACTIONS (8)
  - Abasia [None]
  - Muscular weakness [None]
  - Gait disturbance [None]
  - Drug ineffective [None]
  - Gait disturbance [None]
  - Therapy cessation [None]
  - Disease recurrence [None]
  - Adverse drug reaction [None]
